FAERS Safety Report 6647865-0 (Version None)
Quarter: 2010Q1

REPORT INFORMATION
  Report Type: 
  Country: None (occurrence: None)
  Receive Date: 20100324
  Receipt Date: 20100317
  Transmission Date: 20100710
  Serious: Yes (Other)
  Sender: FDA-Public Use
  Company Number: FR-JNJFOC-20100305248

PATIENT
  Age: 64 Year
  Sex: Male

DRUGS (3)
  1. TAVANIC [Suspect]
     Indication: COUGH
     Route: 065
  2. PYOSTACINE [Concomitant]
     Indication: COUGH
     Route: 065
  3. AMOXICILLIN AND CLAVULANATE POTASSIUM [Concomitant]
     Indication: COUGH
     Route: 065

REACTIONS (2)
  - LIGAMENT RUPTURE [None]
  - MYALGIA [None]
